FAERS Safety Report 11183730 (Version 2)
Quarter: 2015Q2

REPORT INFORMATION
  Report Type: Spontaneous
  Country: US (occurrence: US)
  Receive Date: 20150612
  Receipt Date: 20150630
  Transmission Date: 20150821
  Serious: No
  Sender: FDA-Public Use
  Company Number: US-HORIZON-ACT-0088-2015

PATIENT
  Age: 7 Year
  Sex: Male

DRUGS (6)
  1. ZYVOX [Concomitant]
     Active Substance: LINEZOLID
     Route: 048
  2. TOBRAMYCIN. [Concomitant]
     Active Substance: TOBRAMYCIN
     Route: 042
  3. ACTIMMUNE [Suspect]
     Active Substance: INTERFERON GAMMA-1B
     Indication: CHRONIC GRANULOMATOUS DISEASE
     Dates: start: 201504
  4. BIAXIN [Concomitant]
     Active Substance: CLARITHROMYCIN
  5. IVIG [Concomitant]
     Active Substance: HUMAN IMMUNOGLOBULIN G
  6. IMIPENEM [Concomitant]
     Active Substance: IMIPENEM

REACTIONS (1)
  - Fatigue [Not Recovered/Not Resolved]
